FAERS Safety Report 10710795 (Version 1)
Quarter: 2015Q1

REPORT INFORMATION
  Report Type: Spontaneous
  Country: IT (occurrence: None)
  Receive Date: 20150112
  Receipt Date: 20150112
  Transmission Date: 20150721
  Serious: Yes (Hospitalization)
  Sender: FDA-Public Use
  Company Number: FK201500057

PATIENT
  Age: 55 Year
  Sex: Male
  Weight: 82 kg

DRUGS (4)
  1. LANSOPRAZOLE. [Concomitant]
     Active Substance: LANSOPRAZOLE
  2. IRINOTECAN (MANUFACTURER UNKNOWN) (IRINOTECAN) (IRINOTECAN) [Suspect]
     Active Substance: IRINOTECAN
     Indication: COLON CANCER
     Dosage: 245 MG, CYCLICAL
     Route: 041
     Dates: start: 20140203
  3. FLUORO-URACILE [Suspect]
     Active Substance: FLUOROURACIL
     Indication: COLON CANCER
     Dosage: 2800 MG, CYCLICAL
     Route: 042
     Dates: start: 20140203
  4. ERBITUX [Suspect]
     Active Substance: CETUXIMAB
     Indication: COLON CANCER
     Route: 041
     Dates: start: 20140203

REACTIONS (3)
  - Staphylococcal bacteraemia [None]
  - Intervertebral discitis [None]
  - Joint effusion [None]

NARRATIVE: CASE EVENT DATE: 20141017
